FAERS Safety Report 8812081 (Version 2)
Quarter: 2012Q4

REPORT INFORMATION
  Report Type: Report from Study
  Country: BE (occurrence: BE)
  Receive Date: 20120927
  Receipt Date: 20121029
  Transmission Date: 20130627
  Serious: Yes (Hospitalization)
  Sender: FDA-Public Use
  Company Number: BE-TEVA-361525ISR

PATIENT
  Age: 77 Year
  Sex: Female
  Weight: 57 kg

DRUGS (19)
  1. VINCRISTINE [Suspect]
     Indication: LYMPHOMA
     Dosage: .0952 Milligram Daily;
     Route: 042
     Dates: start: 20110707, end: 20111208
  2. RITUXIMAB [Suspect]
     Indication: LYMPHOMA
     Route: 042
     Dates: start: 20110707
  3. PREDNISONE [Suspect]
     Indication: LYMPHOMA
     Dosage: 4.7619 Milligram Daily;
     Route: 048
     Dates: start: 20110707, end: 20111208
  4. CYCLOPHOSPHAMIDE [Suspect]
     Indication: LYMPHOMA
     Dosage: 58.4762 Milligram Daily;
     Route: 042
     Dates: start: 20110707, end: 20111208
  5. AUGMENTIN RETARD [Concomitant]
     Indication: PNEUMONIA
     Route: 048
     Dates: start: 201109, end: 201109
  6. INDERAL [Concomitant]
     Indication: HYPERTENSION
     Dates: start: 2002
  7. PANTOMED [Concomitant]
     Indication: GASTROOESOPHAGEAL REFLUX DISEASE
     Dates: start: 201002
  8. ZOLPIDEM [Concomitant]
     Indication: INSOMNIA
     Dates: start: 20110825
  9. LYSOMUCIL [Concomitant]
     Indication: NASOPHARYNGITIS
     Dates: start: 20111025
  10. COVERSYL [Concomitant]
     Indication: HYPERTENSION
     Dates: start: 20111006
  11. XANAX [Concomitant]
     Indication: ANXIETY
     Dates: start: 20111029
  12. PLAVIX [Concomitant]
     Dates: start: 2007, end: 20120719
  13. AFEBRYL [Concomitant]
     Indication: RESPIRATORY TRACT INFECTION
     Dates: start: 201107, end: 201107
  14. CLARITHROMYCIN [Concomitant]
     Indication: SINUSITIS
     Dates: start: 20110818, end: 201108
  15. AVELOX [Concomitant]
     Indication: PNEUMONIA
     Dates: start: 20110927, end: 201109
  16. AMOXICILLINE [Concomitant]
     Indication: UPPER RESPIRATORY TRACT INFECTION
     Dates: start: 20111115, end: 201112
  17. DAFALGAN [Concomitant]
     Dates: start: 20120719, end: 20120719
  18. ZYRTEC [Concomitant]
     Dates: start: 20120719, end: 20120719
  19. AUGMENTIN [Concomitant]
     Indication: BRONCHITIS
     Dates: start: 201205, end: 201206

REACTIONS (6)
  - Orthostatic tremor [Recovered/Resolved]
  - Respiratory tract infection [Recovered/Resolved]
  - Emotional disorder [None]
  - Asthenia [None]
  - Staphylococcal infection [None]
  - Concomitant disease aggravated [None]
